FAERS Safety Report 9272676 (Version 4)
Quarter: 2013Q2

REPORT INFORMATION
  Report Type: Report from Study
  Country: BE (occurrence: BE)
  Receive Date: 20130506
  Receipt Date: 20130628
  Transmission Date: 20140414
  Serious: Yes (Death, Life-Threatening, Hospitalization, Disabling, Other)
  Sender: FDA-Public Use
  Company Number: BE-ASTRAZENECA-2013SE30515

PATIENT
  Age: 18928 Day
  Sex: Female

DRUGS (5)
  1. AZD6140 [Suspect]
     Indication: CORONARY ARTERY DISEASE
     Route: 048
     Dates: start: 20120912
  2. COVERSYL [Concomitant]
     Indication: HYPERTENSION
     Route: 048
  3. ZOCOR [Concomitant]
     Indication: HYPERCHOLESTEROLAEMIA
     Route: 048
  4. EMCONCOR [Concomitant]
     Indication: HYPERTENSION
     Route: 048
  5. ASA [Concomitant]
     Route: 048

REACTIONS (1)
  - Subarachnoid haemorrhage [Fatal]
